FAERS Safety Report 22058898 (Version 1)
Quarter: 2023Q1

REPORT INFORMATION
  Report Type: Spontaneous
  Country: US (occurrence: None)
  Receive Date: 20230302
  Receipt Date: 20230302
  Transmission Date: 20230417
  Serious: No
  Sender: FDA-Public Use
  Company Number: None

PATIENT
  Age: 59 Year
  Sex: Male
  Weight: 87.5 kg

DRUGS (1)
  1. DEFINITY [Suspect]
     Active Substance: PERFLUTREN

REACTIONS (2)
  - Back pain [None]
  - Injection related reaction [None]

NARRATIVE: CASE EVENT DATE: 20230228
